FAERS Safety Report 24352449 (Version 2)
Quarter: 2025Q2

REPORT INFORMATION
  Report Type: Spontaneous
  Country: US (occurrence: US)
  Receive Date: 20240923
  Receipt Date: 20250607
  Transmission Date: 20250717
  Serious: No
  Sender: STEMLINE THERAPEUTICS
  Company Number: US-Stemline Therapeutics, Inc.-2024ST003557

PATIENT
  Age: 57 Year
  Sex: Female

DRUGS (5)
  1. ORSERDU [Suspect]
     Active Substance: ELACESTRANT
     Indication: Product used for unknown indication
  2. BIOTIN [Concomitant]
     Active Substance: BIOTIN
     Indication: Product used for unknown indication
  3. LASIX [Concomitant]
     Active Substance: FUROSEMIDE
     Indication: Product used for unknown indication
  4. TRAZODONE [Concomitant]
     Active Substance: TRAZODONE HYDROCHLORIDE
     Indication: Product used for unknown indication
  5. TRAZODONE HCL [Concomitant]
     Active Substance: TRAZODONE HYDROCHLORIDE
     Indication: Product used for unknown indication

REACTIONS (3)
  - Illness [Recovered/Resolved]
  - Product dose omission in error [Unknown]
  - Decreased appetite [Unknown]
